FAERS Safety Report 9444002 (Version 1)
Quarter: 2013Q3

REPORT INFORMATION
  Report Type: Spontaneous
  Country: FR (occurrence: FR)
  Receive Date: 20130807
  Receipt Date: 20130807
  Transmission Date: 20140515
  Serious: Yes (Life-Threatening, Hospitalization)
  Sender: FDA-Public Use
  Company Number: FR-ROCHE-1257477

PATIENT
  Age: 65 Year
  Sex: Female

DRUGS (10)
  1. MABTHERA [Suspect]
     Indication: MICROSCOPIC POLYANGIITIS
     Route: 042
     Dates: start: 20130619, end: 20130711
  2. LYRICA [Concomitant]
     Route: 065
     Dates: start: 20130620
  3. WELLVONE [Concomitant]
     Route: 065
     Dates: start: 20130617
  4. ORACILLINE [Concomitant]
     Route: 065
     Dates: start: 20130617
  5. CARDENSIEL [Concomitant]
  6. NEORECORMON [Concomitant]
     Route: 065
  7. VALACICLOVIR [Concomitant]
  8. INEXIUM [Concomitant]
  9. CORTANCYL [Concomitant]
  10. SOLUPRED (FRANCE) [Concomitant]

REACTIONS (1)
  - Posterior reversible encephalopathy syndrome [Recovering/Resolving]
